FAERS Safety Report 5713162-0 (Version None)
Quarter: 2008Q2

REPORT INFORMATION
  Report Type: 
  Country: None (occurrence: None)
  Receive Date: 20080422
  Receipt Date: 20080411
  Transmission Date: 20081010
  Serious: Yes (Other)
  Sender: FDA-Public Use
  Company Number: BR-JNJFOC-20080404033

PATIENT
  Sex: Female

DRUGS (2)
  1. HALDOL [Suspect]
     Indication: DRUG USE FOR UNKNOWN INDICATION
  2. HALDOL [Suspect]

REACTIONS (1)
  - EYE MOVEMENT DISORDER [None]
